FAERS Safety Report 4444884-X (Version None)
Quarter: 2004Q3

REPORT INFORMATION
  Report Type: 
  Country: None (occurrence: None)
  Receive Date: 20040909
  Receipt Date: 20040827
  Transmission Date: 20050211
  Serious: Yes (Other)
  Sender: FDA-Public Use
  Company Number: US-GLAXOSMITHKLINE-A0524724A

PATIENT
  Age: 30 Year
  Sex: Female

DRUGS (8)
  1. LAMOTRIGINE [Suspect]
     Indication: BIPOLAR DISORDER
     Dosage: 300MG PER DAY
  2. LEXAPRO [Concomitant]
     Dosage: 60MG PER DAY
  3. AMBIEN [Concomitant]
     Dosage: 10MG PER DAY
  4. FIORICET [Concomitant]
  5. CLONOPIN [Concomitant]
     Dosage: 1MG PER DAY
  6. ALLEGRA-D [Concomitant]
  7. PAIN MEDICATION [Concomitant]
  8. MAGNESIUM [Concomitant]

REACTIONS (7)
  - CERVICAL INCOMPETENCE [None]
  - DRUG EXPOSURE DURING PREGNANCY [None]
  - HYPERTENSION [None]
  - PLACENTA PRAEVIA [None]
  - PLACENTAL DISORDER [None]
  - PRE-ECLAMPSIA [None]
  - VAGINAL HAEMORRHAGE [None]
